FAERS Safety Report 15413314 (Version 1)
Quarter: 2018Q3

REPORT INFORMATION
  Report Type: Spontaneous
  Country: US (occurrence: US)
  Receive Date: 20180921
  Receipt Date: 20180921
  Transmission Date: 20181010
  Serious: No
  Sender: FDA-Public Use
  Company Number: US-PFIZER INC-2016312170

PATIENT
  Sex: Female

DRUGS (2)
  1. LYRICA [Suspect]
     Active Substance: PREGABALIN
     Dosage: 150 MG, UNK (TWO DIFFERENT MILLIGRAMS, ONE AT NIGHT AND ONE IN THE MORNING)
  2. LYRICA [Suspect]
     Active Substance: PREGABALIN
     Dosage: 100 MG, UNK (TWO DIFFERENT MILLIGRAMS, ONE AT NIGHT AND ONE IN THE MORNING)

REACTIONS (3)
  - Weight increased [Unknown]
  - Hyperphagia [Unknown]
  - Pain [Unknown]
